FAERS Safety Report 9685419 (Version 1)
Quarter: 2013Q4

REPORT INFORMATION
  Report Type: Report from Study
  Country: US (occurrence: US)
  Receive Date: 20131113
  Receipt Date: 20131113
  Transmission Date: 20140711
  Serious: Yes (Hospitalization)
  Sender: FDA-Public Use
  Company Number: US-JNJFOC-20131102721

PATIENT
  Age: 0 None
  Sex: Female
  Weight: 2.3 kg

DRUGS (3)
  1. SIMPONI [Suspect]
     Indication: RHEUMATOID ARTHRITIS
     Route: 064
     Dates: end: 201212
  2. SIMPONI [Suspect]
     Indication: RHEUMATOID ARTHRITIS
     Route: 064
     Dates: start: 2012
  3. MIRALAX [Concomitant]
     Indication: CONSTIPATION
     Route: 048
     Dates: start: 2013

REACTIONS (4)
  - Foetal exposure during pregnancy [Recovered/Resolved]
  - Premature baby [Not Recovered/Not Resolved]
  - Underweight [Recovered/Resolved]
  - Inadequate diet [Recovered/Resolved]
